FAERS Safety Report 9983418 (Version 3)
Quarter: 2015Q3

REPORT INFORMATION
  Report Type: Spontaneous
  Country: GB (occurrence: GB)
  Receive Date: 20140307
  Receipt Date: 20150922
  Transmission Date: 20151125
  Serious: Yes (Hospitalization)
  Sender: FDA-Public Use
  Company Number: PHFR2014GB001973

PATIENT
  Age: 44 Year
  Sex: Male

DRUGS (2)
  1. CLOZARIL [Suspect]
     Active Substance: CLOZAPINE
     Dosage: UNK
     Route: 048
     Dates: start: 20090708, end: 20140224
  2. BRUFEN [Suspect]
     Active Substance: IBUPROFEN
     Indication: ANXIETY
     Dosage: UNK
     Route: 048

REACTIONS (4)
  - Drug abuse [Unknown]
  - Duodenal ulcer perforation [Recovered/Resolved]
  - Platelet count increased [Unknown]
  - White blood cell count increased [Not Recovered/Not Resolved]

NARRATIVE: CASE EVENT DATE: 20140219
